FAERS Safety Report 8620704 (Version 5)
Quarter: 2012Q4

REPORT INFORMATION
  Report Type: 
  Country: DE (occurrence: DE)
  Receive Date: 20120618
  Receipt Date: 20121121
  Transmission Date: 20130627
  Serious: Yes (Hospitalization, Other)
  Sender: FDA-Public Use
  Company Number: DE-ELI_LILLY_AND_COMPANY-DE201205001375

PATIENT
  Sex: Male

DRUGS (16)
  1. BYETTA [Suspect]
     Indication: DIABETES MELLITUS
     Dosage: 5 ug, UNK
     Route: 058
     Dates: start: 201204
  2. BYETTA [Suspect]
     Dosage: 10 ug, UNK
  3. AMLODIPIN                          /00972401/ [Concomitant]
  4. TORASEMID [Concomitant]
  5. HYDROMORPHONE [Concomitant]
  6. METFORMIN [Concomitant]
  7. LIMPTAR [Concomitant]
  8. SPIRONOLACTON [Concomitant]
  9. CANDESARTAN [Concomitant]
  10. BISOPROLOL [Concomitant]
  11. MIRTAZAPIN [Concomitant]
  12. SIMVASTATIN [Concomitant]
  13. XARELTO [Concomitant]
  14. VIGANTOLETTEN [Concomitant]
  15. AMIODARON [Concomitant]
  16. DIGIMERCK [Concomitant]

REACTIONS (10)
  - Hospitalisation [Unknown]
  - Fluid retention [Recovering/Resolving]
  - Atrial fibrillation [Unknown]
  - General physical health deterioration [Not Recovered/Not Resolved]
  - Blood glucose increased [Recovering/Resolving]
  - Insomnia [Recovering/Resolving]
  - Weight decreased [Recovering/Resolving]
  - Glycosylated haemoglobin increased [Not Recovered/Not Resolved]
  - Hyperhidrosis [Not Recovered/Not Resolved]
  - Androgen deficiency [Not Recovered/Not Resolved]
